FAERS Safety Report 9303040 (Version 1)
Quarter: 2013Q2

REPORT INFORMATION
  Report Type: Spontaneous
  Country: GB (occurrence: None)
  Receive Date: 20130516
  Receipt Date: 20130516
  Transmission Date: 20140414
  Serious: Yes (Disabling, Congenital Anomaly, Other)
  Sender: FDA-Public Use
  Company Number: AUR-APL-2013-03787

PATIENT
  Sex: Male

DRUGS (2)
  1. LAMOTRIGINE (LAMOTRIGINE) [Suspect]
     Indication: EPILEPSY
     Route: 064
  2. SODIUM VALPROATE (VALPROATE SODIUM) [Suspect]
     Indication: EPILEPSY
     Route: 064

REACTIONS (3)
  - Foetal anticonvulsant syndrome [None]
  - Congenital anomaly [None]
  - Maternal drugs affecting foetus [None]
